FAERS Safety Report 11637115 (Version 1)
Quarter: 2015Q4

REPORT INFORMATION
  Report Type: Spontaneous
  Country: US (occurrence: None)
  Receive Date: 20151015
  Receipt Date: 20151015
  Transmission Date: 20160304
  Serious: No
  Sender: FDA-Public Use
  Company Number: None

PATIENT
  Age: 68 Year
  Sex: Female
  Weight: 69.85 kg

DRUGS (18)
  1. COQ10 UBIQUINOL [Concomitant]
  2. OXYCODONE-ACETAMINOPHEN 5-325 [Suspect]
     Active Substance: ACETAMINOPHEN\OXYCODONE HYDROCHLORIDE
     Indication: PROCEDURAL PAIN
     Dosage: 1 TAB EVERY 4-6 HRS AS NEEDED TAKEN BY MOUTH
     Route: 048
     Dates: start: 20151012, end: 20151014
  3. PERCOCET 5-325 [Concomitant]
  4. VITAMIN K2 [Concomitant]
     Active Substance: MENAQUINONE 6
  5. AMOXICILLIN. [Concomitant]
     Active Substance: AMOXICILLIN
  6. ASPIRIN. [Concomitant]
     Active Substance: ASPIRIN
  7. SELENIUM [Concomitant]
     Active Substance: SELENIUM
  8. OMEGA 3 FISH OIL [Concomitant]
     Active Substance: FISH OIL\OMEGA-3 FATTY ACIDS
  9. MAGNESIUM CITRATE. [Concomitant]
     Active Substance: MAGNESIUM CITRATE
  10. VITAMIN B12 [Concomitant]
     Active Substance: CYANOCOBALAMIN
  11. ASTAXANTHIN [Concomitant]
  12. VITAMIN C [Concomitant]
     Active Substance: ASCORBIC ACID
  13. VITAMIN E [Concomitant]
     Active Substance: .ALPHA.-TOCOPHEROL
  14. VITAMIN B3 [Concomitant]
     Active Substance: NIACIN
  15. .ALPHA.-LIPOIC ACID [Concomitant]
     Active Substance: .ALPHA.-LIPOIC ACID
  16. BETA-CAROTENE [Concomitant]
  17. PROBIOTIC (CULTURELL) [Concomitant]
  18. MELATONIN [Concomitant]
     Active Substance: MELATONIN

REACTIONS (5)
  - Nausea [None]
  - Hyperhidrosis [None]
  - Blood pressure abnormal [None]
  - Dizziness [None]
  - Cold sweat [None]

NARRATIVE: CASE EVENT DATE: 20151013
